FAERS Safety Report 9379878 (Version 1)
Quarter: 2013Q3

REPORT INFORMATION
  Report Type: Spontaneous
  Country: US (occurrence: US)
  Receive Date: 20130702
  Receipt Date: 20130702
  Transmission Date: 20140515
  Serious: Yes (Other)
  Sender: FDA-Public Use
  Company Number: US-ELI_LILLY_AND_COMPANY-US201306008387

PATIENT
  Age: 72 Year
  Sex: Male

DRUGS (5)
  1. HUMALOG 50% LISPRO, 50% NPL [Suspect]
     Dosage: UNK
     Dates: start: 201305
  2. JANUVIA [Concomitant]
  3. GLUCOVANCE [Concomitant]
  4. PREVACID [Concomitant]
  5. TEKTURNA [Concomitant]

REACTIONS (1)
  - Pancreatitis [Unknown]
